FAERS Safety Report 4995089-5 (Version None)
Quarter: 2006Q2

REPORT INFORMATION
  Report Type: 
  Country: None (occurrence: None)
  Receive Date: 20060503
  Receipt Date: 20060420
  Transmission Date: 20061013
  Serious: Yes (Other)
  Sender: FDA-Public Use
  Company Number: USA0510111120

PATIENT
  Age: 8 Year
  Sex: Male
  Weight: 20 kg

DRUGS (1)
  1. STRATTERA [Suspect]
     Indication: ATTENTION DEFICIT/HYPERACTIVITY DISORDER
     Dosage: 18 MG
     Dates: start: 20030401, end: 20050101

REACTIONS (5)
  - ANION GAP INCREASED [None]
  - APATHY [None]
  - RENAL DISORDER [None]
  - RHABDOMYOLYSIS [None]
  - TEARFULNESS [None]
